FAERS Safety Report 18546401 (Version 2)
Quarter: 2020Q4

REPORT INFORMATION
  Report Type: Report from Study
  Country: US (occurrence: US)
  Receive Date: 20201125
  Receipt Date: 20201209
  Transmission Date: 20210114
  Serious: Yes (Life-Threatening, Hospitalization, Disabling, Other)
  Sender: FDA-Public Use
  Company Number: NVSC2020US308346

PATIENT
  Age: 70 Year
  Sex: Male

DRUGS (1)
  1. ENTRESTO [Suspect]
     Active Substance: SACUBITRIL\VALSARTAN
     Indication: CARDIAC FAILURE
     Dosage: 50 MG, BID
     Route: 065
     Dates: start: 202003

REACTIONS (10)
  - Cerebral haemorrhage [Unknown]
  - Memory impairment [Unknown]
  - Hypotension [Unknown]
  - Brain injury [Unknown]
  - Skull fracture [Unknown]
  - Blood sodium decreased [Unknown]
  - Rheumatoid arthritis [Unknown]
  - Fall [Unknown]
  - Heart rate decreased [Unknown]
  - Parkinson^s disease [Unknown]

NARRATIVE: CASE EVENT DATE: 202004
